FAERS Safety Report 7660259-4 (Version None)
Quarter: 2011Q3

REPORT INFORMATION
  Report Type: 
  Country: None (occurrence: None)
  Receive Date: 20110805
  Receipt Date: 20110722
  Transmission Date: 20111222
  Serious: Yes (Hospitalization, Other)
  Sender: FDA-Public Use
  Company Number: PHHY2011JP54498

PATIENT
  Sex: Male
  Weight: 59 kg

DRUGS (17)
  1. ASVERIN [Suspect]
     Indication: NASOPHARYNGITIS
     Dosage: 60 MG, DAILY
     Route: 048
     Dates: start: 20110613, end: 20110614
  2. RISPERDAL [Concomitant]
     Dosage: UNK UKN, UNK
     Route: 048
  3. LOPERAMIDE HCL [Concomitant]
     Dosage: UNK UKN, UNK
     Route: 048
  4. ZYPREXA [Concomitant]
     Dosage: UNK UKN, UNK
     Route: 048
  5. EURODIN [Concomitant]
     Dosage: UNK UKN, UNK
     Route: 048
  6. TRANEXAMIC ACID [Suspect]
     Indication: NASOPHARYNGITIS
     Dosage: 750 MG, DAILY
     Route: 048
     Dates: start: 20110613, end: 20110614
  7. VOLTAREN [Suspect]
     Indication: PYREXIA
     Dosage: UNK UKN, AS NECESSARY
     Route: 048
     Dates: start: 20110614, end: 20110614
  8. PRIMPERAN TAB [Concomitant]
     Dosage: UNK UKN, UNK
  9. REFLEX [Concomitant]
     Dosage: UNK UKN, UNK
     Route: 048
  10. MUCODYNE [Suspect]
     Indication: NASOPHARYNGITIS
     Dosage: 1500 MG, DAILY
     Route: 048
     Dates: start: 20110613, end: 20110614
  11. ABILIFY [Concomitant]
     Dosage: UNK UKN, UNK
     Route: 048
  12. FLUNITRAZEPAM [Concomitant]
     Dosage: UNK UKN, UNK
  13. GOODMIN [Concomitant]
     Dosage: UNK UKN, UNK
     Route: 048
  14. ARTANE [Concomitant]
     Dosage: UNK UKN, UNK
     Route: 048
  15. BLONANSERIN [Concomitant]
     Dosage: UNK UKN, UNK
     Route: 048
  16. ALPRAZOLAM [Concomitant]
     Dosage: UNK UKN, UNK
     Route: 048
  17. MEIACT [Suspect]
     Indication: NASOPHARYNGITIS
     Dosage: 300 MG, DAILY
     Route: 048
     Dates: start: 20110613, end: 20110614

REACTIONS (7)
  - BLOOD CREATINE PHOSPHOKINASE INCREASED [None]
  - RESTLESSNESS [None]
  - LIVER DISORDER [None]
  - ALTERED STATE OF CONSCIOUSNESS [None]
  - ENCEPHALITIS VIRAL [None]
  - SPEECH DISORDER [None]
  - CONDITION AGGRAVATED [None]
